FAERS Safety Report 5749484-7 (Version None)
Quarter: 2008Q2

REPORT INFORMATION
  Report Type: 
  Country: None (occurrence: None)
  Receive Date: 20080527
  Receipt Date: 20080515
  Transmission Date: 20081010
  Serious: Yes (Death, Life-Threatening, Other)
  Sender: FDA-Public Use
  Company Number: B0421970A

PATIENT
  Age: 83 Year
  Sex: Male
  Weight: 48 kg

DRUGS (19)
  1. ARIXTRA [Suspect]
     Dosage: 2.5MG PER DAY
     Route: 058
     Dates: start: 20060330, end: 20060406
  2. KETOPROFEN [Suspect]
     Dosage: 100MG SINGLE DOSE
     Route: 042
     Dates: start: 20060330, end: 20060330
  3. LASILIX [Concomitant]
     Route: 065
     Dates: start: 20060404
  4. FUMAFER [Concomitant]
     Route: 065
     Dates: start: 20060403
  5. TOPALGIC (FRANCE) [Concomitant]
     Route: 065
     Dates: start: 20060403, end: 20060406
  6. MOPRAL [Concomitant]
     Route: 065
     Dates: start: 20060406
  7. MYOLASTAN [Concomitant]
     Route: 065
     Dates: start: 20060403
  8. DAFALGAN [Concomitant]
     Route: 065
     Dates: start: 20060403
  9. TRIATEC [Concomitant]
     Route: 065
  10. ALDACTONE [Concomitant]
     Route: 065
  11. TRANXENE [Concomitant]
     Route: 065
  12. ACTONEL [Concomitant]
     Route: 065
  13. HEXAQUINE [Concomitant]
     Route: 065
  14. BACTRIM [Concomitant]
     Route: 065
  15. AERIUS [Concomitant]
     Route: 065
  16. ATARAX [Concomitant]
     Route: 065
  17. FOSAMAX [Concomitant]
     Route: 065
  18. ANALGESIC [Concomitant]
     Indication: PAIN PROPHYLAXIS
     Route: 065
  19. ASPEGIC 1000 [Concomitant]
     Dosage: 100MG SINGLE DOSE
     Route: 042
     Dates: start: 20060407, end: 20060407

REACTIONS (10)
  - ANAEMIA [None]
  - ASPIRATION [None]
  - DUODENAL ULCER PERFORATION [None]
  - GASTROINTESTINAL HAEMORRHAGE [None]
  - HYPOVOLAEMIA [None]
  - PERITONITIS [None]
  - PNEUMONIA ASPIRATION [None]
  - RENAL FAILURE [None]
  - RESPIRATORY DISTRESS [None]
  - SEPSIS [None]
